FAERS Safety Report 18616084 (Version 2)
Quarter: 2021Q1

REPORT INFORMATION
  Report Type: Report from Study
  Country: AR (occurrence: AR)
  Receive Date: 20201214
  Receipt Date: 20210325
  Transmission Date: 20210419
  Serious: Yes (Life-Threatening, Other)
  Sender: FDA-Public Use
  Company Number: NVSC2020AR307694

PATIENT
  Age: 30 Year
  Sex: Male

DRUGS (6)
  1. RYDAPT [Suspect]
     Active Substance: MIDOSTAURIN
     Dosage: 50 MG, Q12H
     Route: 048
     Dates: start: 20200828
  2. RYDAPT [Suspect]
     Active Substance: MIDOSTAURIN
     Indication: ACUTE MYELOID LEUKAEMIA
     Dosage: 100 MG, BID
     Route: 065
     Dates: start: 20200228
  3. RYDAPT [Suspect]
     Active Substance: MIDOSTAURIN
     Dosage: 100 MG, BID
     Route: 065
  4. RYDAPT [Suspect]
     Active Substance: MIDOSTAURIN
     Dosage: 50 MG, Q12H (AS REPORTED 17 JUL)
     Route: 065
  5. RYDAPT [Suspect]
     Active Substance: MIDOSTAURIN
     Dosage: 50 MG, Q12H
     Route: 048
     Dates: end: 20200814
  6. RYDAPT [Suspect]
     Active Substance: MIDOSTAURIN
     Dosage: UNK
     Route: 065

REACTIONS (4)
  - Neutrophil count decreased [Recovered/Resolved]
  - White blood cell count decreased [Recovered/Resolved]
  - Ill-defined disorder [Recovered/Resolved]
  - Neutropenia [Recovered/Resolved]

NARRATIVE: CASE EVENT DATE: 20200731
